FAERS Safety Report 6713584-5 (Version None)
Quarter: 2010Q2

REPORT INFORMATION
  Report Type: 
  Country: None (occurrence: None)
  Receive Date: 20100506
  Receipt Date: 20100428
  Transmission Date: 20101027
  Serious: No
  Sender: FDA-Public Use
  Company Number: US-JNJFOC-20100500162

PATIENT
  Sex: Female
  Weight: 191.87 kg

DRUGS (3)
  1. FENTANYL CITRATE [Suspect]
     Indication: PAIN IN EXTREMITY
     Dosage: NDC# 0781-7111-55
     Route: 062
  2. FENTANYL CITRATE [Suspect]
     Indication: BACK PAIN
     Dosage: NDC# 0781-7111-55
     Route: 062
  3. UNKNOWN MEDICATION [Concomitant]
     Indication: DRUG USE FOR UNKNOWN INDICATION
     Route: 065

REACTIONS (2)
  - APPLICATION SITE RASH [None]
  - WRONG TECHNIQUE IN DRUG USAGE PROCESS [None]
